FAERS Safety Report 17441745 (Version 1)
Quarter: 2020Q1

REPORT INFORMATION
  Report Type: Report from Study
  Country: ZA (occurrence: ZA)
  Receive Date: 20200220
  Receipt Date: 20200220
  Transmission Date: 20200409
  Serious: Yes (Other)
  Sender: FDA-Public Use
  Company Number: ZA-ASTRAZENECA-2020SE23214

PATIENT
  Age: 26602 Day
  Sex: Male

DRUGS (7)
  1. CARDIO-DISPRIN [Concomitant]
     Dosage: 1 DAILY
  2. ADCO GLUCOMED [Concomitant]
     Active Substance: GLICLAZIDE
     Dosage: 1 AT NIGHT
  3. SIMVASTATIN. [Concomitant]
     Active Substance: SIMVASTATIN
  4. PLENISH-K [Concomitant]
     Active Substance: POTASSIUM CHLORIDE
     Dosage: 1 DAILY
  5. AMLOC [Concomitant]
  6. FORXIGA [Suspect]
     Active Substance: DAPAGLIFLOZIN
     Indication: TYPE 2 DIABETES MELLITUS
     Route: 048
     Dates: start: 20190901
  7. GLUCOPHAGE 850 [Concomitant]
     Dosage: 1 BD

REACTIONS (5)
  - Weight decreased [Unknown]
  - Blood glucose increased [Not Recovered/Not Resolved]
  - Blood pressure increased [Unknown]
  - Off label use [Not Recovered/Not Resolved]
  - Drug ineffective [Not Recovered/Not Resolved]

NARRATIVE: CASE EVENT DATE: 20190901
